FAERS Safety Report 7679294-5 (Version None)
Quarter: 2011Q3

REPORT INFORMATION
  Report Type: 
  Country: None (occurrence: None)
  Receive Date: 20110812
  Receipt Date: 20110728
  Transmission Date: 20111222
  Serious: No
  Sender: FDA-Public Use
  Company Number: US-BAYER-2011-067151

PATIENT
  Sex: Female

DRUGS (16)
  1. ZOLPIDEM [Concomitant]
     Dosage: 10 MG, UNK
     Dates: start: 20110713
  2. ALPRAZOLAM [Concomitant]
     Dosage: 1 MG, UNK
     Dates: start: 20110614
  3. OMEPRAZOLE [Concomitant]
     Dosage: 40 MG, UNK
     Dates: start: 20110216
  4. OXYCONTIN [Concomitant]
     Dosage: UNK
     Dates: start: 20110619
  5. GABAPENTIN [Concomitant]
     Dosage: 400 MG, UNK
     Dates: start: 20110703
  6. METOCLOPRAMIDE [Concomitant]
     Dosage: 10 MG, UNK
     Dates: start: 20110612
  7. NEXAVAR [Suspect]
     Indication: RENAL CANCER
     Dosage: 400 MG, BID
     Route: 048
     Dates: start: 20110710, end: 20110701
  8. HYDROMORPHONE HCL [Concomitant]
     Dosage: 4 MG, UNK
     Dates: start: 20110716
  9. ONDANSETRON [Concomitant]
     Dosage: 8 MG, UNK
     Dates: start: 20110613
  10. LEVOTHYROXINE SODIUM [Concomitant]
     Dosage: 0.125 MG, UNK
     Dates: start: 20110316
  11. CIPROFLOXACIN [Concomitant]
     Dosage: 250 MG, UNK
     Dates: start: 20110705
  12. OXYCODONE HCL [Concomitant]
     Dosage: 30 MG, UNK
     Dates: start: 20110619
  13. SENOKOT [Concomitant]
     Dosage: UNK
     Dates: start: 20110613
  14. POLYETHYLENE GLYCOL [Concomitant]
     Dosage: UNK
     Dates: start: 20110411
  15. FENTANYL [Concomitant]
     Dosage: 200 MG, UNK
     Dates: start: 20110719
  16. PHENAZOPYRIDINE HCL TAB [Concomitant]
     Dosage: 200 MG, UNK
     Dates: start: 20110705

REACTIONS (2)
  - NAUSEA [None]
  - VOMITING [None]
